FAERS Safety Report 22093834 (Version 1)
Quarter: 2023Q1

REPORT INFORMATION
  Report Type: Spontaneous
  Country: US (occurrence: None)
  Receive Date: 20230314
  Receipt Date: 20230314
  Transmission Date: 20230418
  Serious: No
  Sender: FDA-Public Use
  Company Number: None

PATIENT
  Age: 56 Year
  Sex: Male
  Weight: 171 kg

DRUGS (1)
  1. NOVOLOG [Suspect]
     Active Substance: INSULIN ASPART
     Indication: Diabetes mellitus
     Dosage: OTHER QUANTITY : 3 VIALS;?FREQUENCY : EVERY 8 HOURS;?
     Route: 058
     Dates: start: 20150301, end: 20230314

REACTIONS (1)
  - Urticaria [None]

NARRATIVE: CASE EVENT DATE: 20230301
